FAERS Safety Report 9272728 (Version 2)
Quarter: 2013Q4

REPORT INFORMATION
  Report Type: Spontaneous
  Country: US (occurrence: US)
  Receive Date: 20130506
  Receipt Date: 20131220
  Transmission Date: 20140711
  Serious: Yes (Hospitalization, Other)
  Sender: FDA-Public Use
  Company Number: US-ASTRAZENECA-2012SE28438

PATIENT
  Age: 823 Month
  Sex: Female
  Weight: 76.2 kg

DRUGS (22)
  1. PRILOSEC OTC [Suspect]
     Route: 048
  2. CRESTOR [Suspect]
     Indication: BLOOD CHOLESTEROL ABNORMAL
     Route: 048
  3. CRESTOR [Suspect]
     Indication: BLOOD CHOLESTEROL ABNORMAL
     Route: 048
  4. CRESTOR [Suspect]
     Indication: BLOOD CHOLESTEROL ABNORMAL
     Route: 048
     Dates: end: 201312
  5. CRESTOR [Suspect]
     Indication: BLOOD CHOLESTEROL ABNORMAL
     Route: 048
     Dates: start: 20131211, end: 201312
  6. CRESTOR [Suspect]
     Indication: BLOOD CHOLESTEROL ABNORMAL
     Route: 048
     Dates: start: 201312
  7. PRILOSEC [Suspect]
     Route: 048
  8. MORPHINE [Suspect]
     Route: 065
  9. ASPIRIN [Suspect]
     Route: 065
  10. DIOVAN [Suspect]
     Route: 048
  11. DIOVAN [Suspect]
     Route: 065
     Dates: end: 2011
  12. DIOVAN [Suspect]
     Route: 065
     Dates: start: 2011
  13. CLONIDINE CHLORIDE [Suspect]
     Route: 065
  14. FLU SHOT [Suspect]
     Route: 065
  15. SPIRIVA [Concomitant]
     Indication: EMPHYSEMA
  16. CLARITIN [Concomitant]
  17. VITAMIN D SUPPLEMENTS [Concomitant]
  18. B12 SUPPLEMENTS [Concomitant]
  19. LEVOTHYROXINE [Concomitant]
     Indication: HYPOTHYROIDISM
     Dosage: DAILY
     Dates: start: 1998, end: 2012
  20. LEVOTHYROXINE [Concomitant]
     Indication: HYPOTHYROIDISM
     Dates: start: 2012
  21. COQ10 [Concomitant]
     Indication: SUPPLEMENTATION THERAPY
     Dates: start: 2011
  22. CENTRUM SILVER [Concomitant]
     Indication: SUPPLEMENTATION THERAPY
     Dosage: DAILY

REACTIONS (39)
  - Pneumonia viral [Recovered/Resolved]
  - Gastric haemorrhage [Recovered/Resolved]
  - Haematuria [Unknown]
  - Haemoglobin decreased [Unknown]
  - Hiatus hernia [Unknown]
  - Adverse drug reaction [Recovered/Resolved]
  - Somnolence [Recovered/Resolved]
  - Blood pressure systolic increased [Unknown]
  - Fall [Unknown]
  - Muscle spasms [Not Recovered/Not Resolved]
  - Dry mouth [Unknown]
  - Epistaxis [Unknown]
  - Dyspnoea [Recovered/Resolved]
  - Emphysema [Not Recovered/Not Resolved]
  - Influenza [Recovered/Resolved]
  - Vomiting [Unknown]
  - Immune system disorder [Unknown]
  - Pain in extremity [Not Recovered/Not Resolved]
  - Muscle spasms [Not Recovered/Not Resolved]
  - Muscular weakness [Not Recovered/Not Resolved]
  - Limb discomfort [Not Recovered/Not Resolved]
  - Eye disorder [Not Recovered/Not Resolved]
  - Muscle rigidity [Not Recovered/Not Resolved]
  - Muscle spasms [Not Recovered/Not Resolved]
  - Vitamin D decreased [Not Recovered/Not Resolved]
  - Vitamin B12 deficiency [Not Recovered/Not Resolved]
  - Blood cholesterol increased [Unknown]
  - Low density lipoprotein increased [Unknown]
  - Malaise [Recovered/Resolved]
  - Muscle disorder [Not Recovered/Not Resolved]
  - Feeling abnormal [Unknown]
  - Allergy to vaccine [Recovered/Resolved]
  - Ocular hyperaemia [Not Recovered/Not Resolved]
  - Drug hypersensitivity [Unknown]
  - Allergy to animal [Not Recovered/Not Resolved]
  - Gastrointestinal disorder [Unknown]
  - Off label use [Not Recovered/Not Resolved]
  - Intentional drug misuse [Unknown]
  - Drug dose omission [Unknown]
